FAERS Safety Report 10182543 (Version 3)
Quarter: 2014Q3

REPORT INFORMATION
  Report Type: Spontaneous
  Country: US (occurrence: None)
  Receive Date: 20140516
  Receipt Date: 20140911
  Transmission Date: 20150326
  Serious: Yes (Hospitalization, Other)
  Sender: FDA-Public Use
  Company Number: UNT-2014-000007

PATIENT
  Age: 63 Year
  Sex: Female
  Weight: 82.1 kg

DRUGS (18)
  1. PREDNISONE. [Concomitant]
     Active Substance: PREDNISONE
  2. METOPROLOL TARTRATE. [Concomitant]
     Active Substance: METOPROLOL TARTRATE
  3. LASIX [Concomitant]
     Active Substance: FUROSEMIDE
  4. TYVASO [Suspect]
     Active Substance: TREPROSTINIL
     Indication: COR PULMONALE CHRONIC
     Route: 055
     Dates: start: 20140325
  5. DOXYCYCLINE HYCLATE. [Concomitant]
     Active Substance: DOXYCYCLINE HYCLATE
  6. ZOLOFT [Concomitant]
     Active Substance: SERTRALINE HYDROCHLORIDE
  7. LATANOPROST. [Concomitant]
     Active Substance: LATANOPROST
  8. ASPIRIN. [Concomitant]
     Active Substance: ASPIRIN
  9. PRAVASTATIN [Concomitant]
     Active Substance: PRAVASTATIN\PRAVASTATIN SODIUM
  10. CELLCEPT [Concomitant]
     Active Substance: MYCOPHENOLATE MOFETIL\MYCOPHENOLATE MOFETIL HYDROCHLORIDE
  11. POTASSIUM CHLORIDE. [Concomitant]
     Active Substance: POTASSIUM CHLORIDE
  12. ADCIRCA [Concomitant]
     Active Substance: TADALAFIL
  13. OMEPRAZOLE. [Concomitant]
     Active Substance: OMEPRAZOLE
  14. XANAX [Concomitant]
     Active Substance: ALPRAZOLAM
  15. WELLBUTRIN [Concomitant]
     Active Substance: BUPROPION HYDROCHLORIDE
  16. OPSUMIT (MACITENTAN) [Concomitant]
  17. ZYRTEC [Concomitant]
     Active Substance: CETIRIZINE HYDROCHLORIDE
  18. PROTONIX [Concomitant]
     Active Substance: PANTOPRAZOLE SODIUM

REACTIONS (9)
  - Fatigue [None]
  - Bronchitis [None]
  - Chest discomfort [None]
  - Oxygen saturation decreased [None]
  - Pneumonia [None]
  - Cardiomegaly [None]
  - Malaise [None]
  - Hypoxia [None]
  - Hypokalaemia [None]

NARRATIVE: CASE EVENT DATE: 20140422
